FAERS Safety Report 21249939 (Version 1)
Quarter: 2022Q3

REPORT INFORMATION
  Report Type: Spontaneous
  Country: US (occurrence: US)
  Receive Date: 20220824
  Receipt Date: 20220824
  Transmission Date: 20221026
  Serious: Yes (Other)
  Sender: FDA-Public Use
  Company Number: US-GE HEALTHCARE-2022CSU005718

PATIENT
  Sex: Male
  Weight: 100 kg

DRUGS (4)
  1. OMNISCAN [Suspect]
     Active Substance: GADODIAMIDE
     Indication: Magnetic resonance imaging
     Dosage: 20 ML, SINGLE
     Route: 065
  2. OMNISCAN [Suspect]
     Active Substance: GADODIAMIDE
     Indication: Product used for unknown indication
     Dosage: 20 ML, SINGLE
     Route: 065
  3. GADOBUTROL [Suspect]
     Active Substance: GADOBUTROL
     Indication: Magnetic resonance imaging
     Dosage: 10 ML, SINGLE
     Route: 065
  4. GADOBUTROL [Suspect]
     Active Substance: GADOBUTROL
     Indication: Product used for unknown indication

REACTIONS (13)
  - Skin discharge [Unknown]
  - Biopsy skin abnormal [Unknown]
  - Blood test abnormal [Unknown]
  - Urine analysis abnormal [Unknown]
  - Dysphonia [Unknown]
  - Hypoaesthesia [Unknown]
  - Gadolinium deposition disease [Unknown]
  - Rash pruritic [Unknown]
  - Rash [Unknown]
  - Tendon pain [Unknown]
  - Arthralgia [Unknown]
  - Headache [Unknown]
  - Renal impairment [Unknown]
